FAERS Safety Report 4596576-4 (Version None)
Quarter: 2005Q1

REPORT INFORMATION
  Report Type: 
  Country: None (occurrence: None)
  Receive Date: 20050228
  Receipt Date: 20040730
  Transmission Date: 20050727
  Serious: Yes (Death, Life-Threatening, Hospitalization)
  Sender: FDA-Public Use
  Company Number: 8565

PATIENT
  Age: 60 Year
  Sex: Male

DRUGS (3)
  1. METHOTREXATE [Suspect]
     Indication: RHEUMATOID ARTHRITIS
     Dosage: PO
     Route: 048
     Dates: end: 20040601
  2. FOLIC ACID [Concomitant]
  3. MELOXICAM [Concomitant]

REACTIONS (3)
  - MYOCARDITIS [None]
  - PANCYTOPENIA [None]
  - RESPIRATORY FAILURE [None]
